FAERS Safety Report 6716353-5 (Version None)
Quarter: 2010Q2

REPORT INFORMATION
  Report Type: 
  Country: None (occurrence: None)
  Receive Date: 20100507
  Receipt Date: 20100211
  Transmission Date: 20101027
  Serious: Yes (Hospitalization, Other)
  Sender: FDA-Public Use
  Company Number: PHEH2010US01352

PATIENT
  Sex: Female
  Weight: 66 kg

DRUGS (7)
  1. METOPIRONE [Suspect]
     Indication: ECTOPIC ACTH SYNDROME
     Dosage: 250 MG, TID
  2. METOPIRONE [Suspect]
     Indication: CUSHING'S SYNDROME
     Dosage: 500 MG, TID
  3. OCTREOTIDE ACETATE [Suspect]
  4. HYDROCHLOROTHIAZIDE [Concomitant]
     Indication: HYPERTENSION
     Dosage: 25 MG EVERY DAY
     Route: 048
     Dates: start: 20091216, end: 20100130
  5. LISINOPRIL [Concomitant]
     Indication: HYPERTENSION
     Dosage: 40 MG EVERY DAY
     Route: 048
     Dates: start: 20091216, end: 20100130
  6. LISINOPRIL [Concomitant]
     Indication: DIABETES MELLITUS
  7. PERCOCET [Concomitant]

REACTIONS (5)
  - ALANINE AMINOTRANSFERASE INCREASED [None]
  - ASPARTATE AMINOTRANSFERASE INCREASED [None]
  - BLOOD ALKALINE PHOSPHATASE INCREASED [None]
  - LIVER FUNCTION TEST ABNORMAL [None]
  - MENTAL STATUS CHANGES [None]
